FAERS Safety Report 6253198-7 (Version None)
Quarter: 2009Q3

REPORT INFORMATION
  Report Type: 
  Country: None (occurrence: None)
  Receive Date: 20090701
  Receipt Date: 20090624
  Transmission Date: 20100115
  Serious: Yes (Life-Threatening, Hospitalization)
  Sender: FDA-Public Use
  Company Number: JP-MERCK-0901USA04446

PATIENT
  Age: 39 Year
  Sex: Male
  Weight: 58 kg

DRUGS (3)
  1. PROPECIA [Suspect]
     Indication: ALOPECIA
     Route: 048
     Dates: start: 20090122, end: 20090126
  2. CALONAL [Concomitant]
     Indication: PYREXIA
     Route: 048
     Dates: start: 20090126, end: 20090126
  3. CALONAL [Concomitant]
     Route: 048

REACTIONS (2)
  - ACUTE HEPATIC FAILURE [None]
  - RENAL FAILURE ACUTE [None]
